FAERS Safety Report 4987341-4 (Version None)
Quarter: 2006Q2

REPORT INFORMATION
  Report Type: 
  Country: None (occurrence: None)
  Receive Date: 20060501
  Receipt Date: 20050930
  Transmission Date: 20061013
  Serious: Yes (Hospitalization)
  Sender: FDA-Public Use
  Company Number: US-MERCK-0510USA00952

PATIENT
  Age: 58 Year
  Sex: Male
  Weight: 114 kg

DRUGS (1)
  1. VIOXX [Suspect]
     Route: 048
     Dates: start: 19990618, end: 20011217

REACTIONS (7)
  - ACUTE CORONARY SYNDROME [None]
  - ATRIAL FIBRILLATION [None]
  - CORONARY ARTERY DISEASE [None]
  - PLEURAL EFFUSION [None]
  - POST PROCEDURAL COMPLICATION [None]
  - RESPIRATORY FAILURE [None]
  - SLEEP APNOEA SYNDROME [None]
